FAERS Safety Report 17404141 (Version 1)
Quarter: 2020Q1

REPORT INFORMATION
  Report Type: Spontaneous
  Country: US (occurrence: US)
  Receive Date: 20200211
  Receipt Date: 20200211
  Transmission Date: 20200409
  Serious: Yes (Other)
  Sender: FDA-Public Use
  Company Number: NVSC2020US034527

PATIENT
  Sex: Female

DRUGS (1)
  1. PASIREOTIDE. [Suspect]
     Active Substance: PASIREOTIDE
     Indication: CUSHING^S SYNDROME
     Dosage: UNK
     Route: 065
     Dates: start: 2013

REACTIONS (2)
  - Hyperglycaemia [Unknown]
  - Diabetes mellitus [Unknown]
